FAERS Safety Report 5591748-4 (Version None)
Quarter: 2008Q1

REPORT INFORMATION
  Report Type: 
  Country: None (occurrence: None)
  Receive Date: 20080115
  Receipt Date: 20080111
  Transmission Date: 20080703
  Serious: Yes (Death)
  Sender: FDA-Public Use
  Company Number: A0701979A

PATIENT
  Age: 53 Year
  Sex: Male

DRUGS (2)
  1. EPIVIR [Suspect]
     Indication: DRUG USE FOR UNKNOWN INDICATION
     Dosage: 100MG PER DAY
     Route: 048
  2. MULTIPLE MEDICATION [Concomitant]

REACTIONS (1)
  - HEPATIC NEOPLASM MALIGNANT [None]
